FAERS Safety Report 21446892 (Version 8)
Quarter: 2025Q1

REPORT INFORMATION
  Report Type: Spontaneous
  Country: US (occurrence: US)
  Receive Date: 20221012
  Receipt Date: 20250102
  Transmission Date: 20250408
  Serious: No
  Sender: PFIZER
  Company Number: US-PFIZER INC-PV202200080866

PATIENT
  Age: 65 Year
  Sex: Female
  Weight: 73.923 kg

DRUGS (2)
  1. XALKORI [Suspect]
     Active Substance: CRIZOTINIB
     Indication: Non-small cell lung cancer
     Dosage: 250 MG, 2X/DAY (1 CAPSULE BY MOUTH TWICE DAILY MAY TAKE WITH OR WITHOUT FOOD. SWALLOW CAPSULE WHOLE)
     Route: 048
     Dates: start: 201403
  2. XALKORI [Suspect]
     Active Substance: CRIZOTINIB
     Indication: Lung neoplasm malignant

REACTIONS (4)
  - Nausea [Unknown]
  - Vomiting [Unknown]
  - Diarrhoea [Unknown]
  - Swelling [Unknown]
